FAERS Safety Report 15021133 (Version 1)
Quarter: 2018Q2

REPORT INFORMATION
  Report Type: Spontaneous
  Country: CH (occurrence: CH)
  Receive Date: 20180618
  Receipt Date: 20180618
  Transmission Date: 20180711
  Serious: Yes (Hospitalization)
  Sender: FDA-Public Use
  Company Number: CH-JNJFOC-20180615628

PATIENT
  Age: 77 Year
  Sex: Male

DRUGS (12)
  1. FOLIC ACID. [Concomitant]
     Active Substance: FOLIC ACID
     Dosage: MORNING
     Route: 048
  2. LAXOBERON [Concomitant]
     Active Substance: SODIUM PICOSULFATE
     Indication: CONSTIPATION PROPHYLAXIS
     Dosage: LAXATIVE DROPS ORAL USE 25 DROPS IN THE EVENING
     Route: 048
  3. DIFLUCAN [Concomitant]
     Active Substance: FLUCONAZOLE
     Indication: ANTIFUNGAL PROPHYLAXIS
     Dosage: 2 IN THE MORNING ONCE PER WEEK
     Route: 048
  4. FENTANYL. [Concomitant]
     Active Substance: FENTANYL
     Indication: ANALGESIC THERAPY
     Dosage: 50 MCG/H TRANSDERMAL 1 IN THE MORNING??EVERY 72 HOURS
  5. TRIMETHOPRIM SULFAMETHOXAZOLE [Concomitant]
     Active Substance: SULFAMETHOXAZOLE\TRIMETHOPRIM
     Indication: ANTIFUNGAL PROPHYLAXIS
     Dosage: 800/160 MG 1 IN THE MORNING 3 TIMES PER WEEK
     Route: 048
  6. VI-DE 3 [Concomitant]
     Active Substance: CHOLECALCIFEROL
     Dosage: 20 DROPS IN THE MORNING
     Route: 048
  7. VALTREX [Concomitant]
     Active Substance: VALACYCLOVIR HYDROCHLORIDE
     Indication: ANTIVIRAL PROPHYLAXIS
     Dosage: 1 IN THE MORNING AND 1 AT NIGHT
     Route: 048
  8. TOBI [Concomitant]
     Active Substance: TOBRAMYCIN
     Dosage: 300 MG/5 ML BY INHALATION TWICE DAILY, ONCE IN THE MORNING AND ONCE IN THE EVENING
     Route: 055
     Dates: start: 20180320
  9. JADENU [Concomitant]
     Active Substance: DEFERASIROX
     Dosage: 360 MG ORALLY 3 AT MIDDAY
     Route: 048
  10. IMBRUVICA [Suspect]
     Active Substance: IBRUTINIB
     Indication: CHRONIC LYMPHOCYTIC LEUKAEMIA
     Route: 048
     Dates: start: 201705, end: 20170820
  11. TRANSIPEG [Concomitant]
     Active Substance: POLYETHYLENE GLYCOL 3350
     Indication: CONSTIPATION PROPHYLAXIS
     Dosage: SACHET FOR ORAL USE, 1 IN THE MORNING AND 1 AT MIDDAY
     Route: 048
  12. IMBRUVICA [Suspect]
     Active Substance: IBRUTINIB
     Indication: CHRONIC LYMPHOCYTIC LEUKAEMIA
     Route: 048
     Dates: start: 20170821, end: 20180508

REACTIONS (4)
  - Pyrexia [Not Recovered/Not Resolved]
  - Pneumonia pseudomonal [Unknown]
  - Hepatic necrosis [Not Recovered/Not Resolved]
  - General physical health deterioration [Not Recovered/Not Resolved]

NARRATIVE: CASE EVENT DATE: 20180305
